FAERS Safety Report 16762532 (Version 1)
Quarter: 2019Q3

REPORT INFORMATION
  Report Type: Spontaneous
  Country: US (occurrence: US)
  Receive Date: 20190831
  Receipt Date: 20190831
  Transmission Date: 20191005
  Serious: Yes (Other)
  Sender: FDA-Public Use
  Company Number: US-ABBVIE-19K-163-2905718-00

PATIENT
  Sex: Female

DRUGS (1)
  1. ORILISSA [Suspect]
     Active Substance: ELAGOLIX SODIUM
     Indication: ENDOMETRIOSIS
     Route: 065
     Dates: start: 201908

REACTIONS (2)
  - Feelings of worthlessness [Unknown]
  - Suicidal ideation [Unknown]

NARRATIVE: CASE EVENT DATE: 201908
